FAERS Safety Report 8112303-8 (Version None)
Quarter: 2012Q1

REPORT INFORMATION
  Report Type: 
  Country: None (occurrence: None)
  Receive Date: 20120203
  Receipt Date: 20120203
  Transmission Date: 20120608
  Serious: Yes (Other)
  Sender: FDA-Public Use
  Company Number: None

PATIENT
  Age: 59 Year
  Sex: Female
  Weight: 68.946 kg

DRUGS (3)
  1. VOLTAREN [Suspect]
     Indication: INFLAMMATION
     Dosage: 4 GRAMS
     Dates: start: 20120201, end: 20120202
  2. VOLTAREN [Suspect]
     Indication: ARTHRITIS
     Dosage: 4 GRAMS
     Dates: start: 20120201, end: 20120202
  3. VOLTAREN [Suspect]
     Indication: ARTHRALGIA
     Dosage: 4 GRAMS
     Dates: start: 20120201, end: 20120202

REACTIONS (1)
  - DRUG HYPERSENSITIVITY [None]
